FAERS Safety Report 25084200 (Version 2)
Quarter: 2025Q1

REPORT INFORMATION
  Report Type: Spontaneous
  Country: US (occurrence: US)
  Receive Date: 20250317
  Receipt Date: 20250320
  Transmission Date: 20250408
  Serious: No
  Sender: AMGEN
  Company Number: US-AMGEN-USASP2025051182

PATIENT
  Sex: Female

DRUGS (6)
  1. OTEZLA [Suspect]
     Active Substance: APREMILAST
     Indication: Psoriasis
     Route: 065
     Dates: start: 2018, end: 2019
  2. SKYRIZI [Suspect]
     Active Substance: RISANKIZUMAB-RZAA
     Indication: Psoriasis
     Route: 065
  3. TRIAMCINOLONE [Concomitant]
     Active Substance: TRIAMCINOLONE
     Indication: Hypothyroidism
  4. TRETINOIN [Concomitant]
     Active Substance: TRETINOIN
     Indication: Hypothyroidism
  5. UNITHROID [Concomitant]
     Active Substance: LEVOTHYROXINE SODIUM
     Indication: Hypothyroidism
  6. WEGOVY [Concomitant]
     Active Substance: SEMAGLUTIDE
     Indication: Decreased appetite
     Dosage: UNK UNK, QMO

REACTIONS (2)
  - Psoriasis [Unknown]
  - Intentional product misuse [Unknown]
